FAERS Safety Report 11005508 (Version 1)
Quarter: 2015Q2

REPORT INFORMATION
  Report Type: Spontaneous
  Country: None (occurrence: US)
  Receive Date: 20150409
  Receipt Date: 20150409
  Transmission Date: 20150821
  Serious: No
  Sender: FDA-Public Use
  Company Number: US-ALLERGAN-1418685US

PATIENT
  Sex: Female

DRUGS (1)
  1. LUMIGAN [Suspect]
     Active Substance: BIMATOPROST
     Indication: NORMAL TENSION GLAUCOMA
     Dosage: UNK UNK, QHS
     Route: 047
     Dates: start: 2011

REACTIONS (2)
  - Superficial vein prominence [Unknown]
  - Erythema of eyelid [Not Recovered/Not Resolved]

NARRATIVE: CASE EVENT DATE: 2012
